FAERS Safety Report 9029661 (Version 4)
Quarter: 2014Q3

REPORT INFORMATION
  Report Type: Spontaneous
  Country: MX (occurrence: MX)
  Receive Date: 20130125
  Receipt Date: 20140804
  Transmission Date: 20150326
  Serious: Yes (Other)
  Sender: FDA-Public Use
  Company Number: PHHY2013MX006557

PATIENT
  Age: 85 Year
  Sex: Female

DRUGS (6)
  1. CO-DIOVAN [Suspect]
     Active Substance: HYDROCHLOROTHIAZIDE\VALSARTAN
     Indication: HYPERTENSION
     Dosage: UNK UKN, DAILY
     Route: 048
  2. CO-DIOVAN [Suspect]
     Active Substance: HYDROCHLOROTHIAZIDE\VALSARTAN
     Dosage: 1.5 DF (80MG VALS/12.5 MG HCT) DAILY
     Route: 048
  3. DURATEX [Concomitant]
     Indication: GASTRITIS
     Dosage: 1 DF, DAILY
     Dates: start: 201301
  4. CO-DIOVAN [Suspect]
     Active Substance: HYDROCHLOROTHIAZIDE\VALSARTAN
     Dosage: 1 DF (80MG VALS/12.5 MG HCT) DAILY
     Route: 048
  5. ACETAMINOPHEN. [Concomitant]
     Active Substance: ACETAMINOPHEN
     Indication: BACK PAIN
     Dosage: 1 DF, DAILY
     Dates: start: 198001
  6. CELECOXIB. [Concomitant]
     Active Substance: CELECOXIB
     Indication: BACK PAIN
     Dosage: 1 DF, DAILY
     Dates: start: 198001

REACTIONS (12)
  - Arthralgia [Unknown]
  - Wrong technique in drug usage process [Unknown]
  - Arthropathy [Unknown]
  - Inflammation [Recovered/Resolved]
  - Blood pressure decreased [Recovered/Resolved]
  - Weight increased [Recovered/Resolved]
  - Memory impairment [Recovered/Resolved]
  - Dyspepsia [Recovered/Resolved]
  - Sluggishness [Recovered/Resolved]
  - Bronchial disorder [Recovered/Resolved]
  - Gastric disorder [Unknown]
  - Somnolence [Recovered/Resolved]

NARRATIVE: CASE EVENT DATE: 200701
